FAERS Safety Report 4955794-3 (Version None)
Quarter: 2006Q1

REPORT INFORMATION
  Report Type: 
  Country: None (occurrence: None)
  Receive Date: 20060327
  Receipt Date: 20060327
  Transmission Date: 20060701
  Serious: Yes (Other)
  Sender: FDA-Public Use
  Company Number: None

PATIENT
  Sex: Male
  Weight: 72.5755 kg

DRUGS (4)
  1. FLOMAX [Suspect]
     Indication: BENIGN PROSTATIC HYPERPLASIA
     Dosage: SEE IMAGE
     Route: 048
     Dates: start: 20050824, end: 20051024
  2. FLOMAX [Suspect]
     Indication: NOCTURIA
     Dosage: SEE IMAGE
     Route: 048
     Dates: start: 20050824, end: 20051024
  3. FLOMAX [Suspect]
     Indication: BENIGN PROSTATIC HYPERPLASIA
     Dosage: SEE IMAGE
     Route: 048
     Dates: start: 20051025, end: 20051124
  4. FLOMAX [Suspect]
     Indication: NOCTURIA
     Dosage: SEE IMAGE
     Route: 048
     Dates: start: 20051025, end: 20051124

REACTIONS (4)
  - DRUG EFFECT INCREASED [None]
  - DRUG INEFFECTIVE [None]
  - FAECES DISCOLOURED [None]
  - MUCOUS STOOLS [None]
